FAERS Safety Report 15020622 (Version 2)
Quarter: 2018Q3

REPORT INFORMATION
  Report Type: Report from Study
  Country: None (occurrence: US)
  Receive Date: 20180618
  Receipt Date: 20180807
  Transmission Date: 20181010
  Serious: Yes (Death)
  Sender: FDA-Public Use
  Company Number: US-BAUSCH-BL-2018-016926

PATIENT
  Sex: Female
  Weight: 59.02 kg

DRUGS (2)
  1. XIFAXAN [Suspect]
     Active Substance: RIFAXIMIN
     Indication: PRIMARY BILIARY CHOLANGITIS
     Dosage: STARTED IN JULY OR AUGUST OF 2017
     Route: 065
     Dates: start: 2017
  2. COUMADIN [Concomitant]
     Active Substance: WARFARIN SODIUM
     Indication: ANTICOAGULANT THERAPY

REACTIONS (2)
  - Primary biliary cholangitis [Fatal]
  - Disease complication [Fatal]
